FAERS Safety Report 17403310 (Version 1)
Quarter: 2020Q1

REPORT INFORMATION
  Report Type: Spontaneous
  Country: US (occurrence: US)
  Receive Date: 20200211
  Receipt Date: 20200211
  Transmission Date: 20200409
  Serious: No
  Sender: FDA-Public Use
  Company Number: US-PERRIGO-19US000484

PATIENT
  Age: 61 Year
  Sex: Female
  Weight: 52.15 kg

DRUGS (7)
  1. TRETINOIN 0.05% CREAM (2L4) [Suspect]
     Active Substance: TRETINOIN
     Indication: SKIN WRINKLING
     Dosage: SMALL AMOUNT, QHS
     Route: 061
     Dates: start: 20190109, end: 20190317
  2. OTHER DRUGS FOR ACID RELATED DISORDERS [Concomitant]
     Indication: GASTROOESOPHAGEAL REFLUX DISEASE
     Dosage: UNK
     Route: 065
  3. OTHER ANTIALLERGICS [Concomitant]
     Indication: PERENNIAL ALLERGY
     Dosage: UNK
     Route: 065
  4. MULTIVITAMINS, PLAIN [Concomitant]
     Active Substance: VITAMINS
     Indication: SUPPLEMENTATION THERAPY
     Dosage: UNK
     Route: 065
  5. VITAMIN C [Concomitant]
     Active Substance: ASCORBIC ACID
     Indication: SUPPLEMENTATION THERAPY
     Dosage: UNK
     Route: 065
  6. BENEFIBER                          /01648102/ [Concomitant]
     Active Substance: GUAR GUM
     Indication: PRODUCT USED FOR UNKNOWN INDICATION
     Dosage: UNK
     Route: 065
  7. VITAMIN D3 [Concomitant]
     Active Substance: CHOLECALCIFEROL
     Indication: SUPPLEMENTATION THERAPY
     Dosage: UNK
     Route: 065

REACTIONS (4)
  - Application site erythema [Recovered/Resolved]
  - Skin fissures [Not Recovered/Not Resolved]
  - Off label use [Recovered/Resolved]
  - Application site dryness [Recovering/Resolving]

NARRATIVE: CASE EVENT DATE: 201901
